FAERS Safety Report 6500251-6 (Version None)
Quarter: 2009Q4

REPORT INFORMATION
  Report Type: 
  Country: None (occurrence: None)
  Receive Date: 20091216
  Receipt Date: 20091209
  Transmission Date: 20100525
  Serious: Yes (Other)
  Sender: FDA-Public Use
  Company Number: US-BAYER-200917483BCC

PATIENT
  Age: 63 Year
  Sex: Female
  Weight: 68 kg

DRUGS (1)
  1. ALKA-SELTZER TABLETS [Suspect]
     Indication: ABDOMINAL DISCOMFORT
     Dosage: UNIT DOSE: 1 DF
     Route: 048
     Dates: start: 20091204

REACTIONS (3)
  - DEAFNESS [None]
  - HEARING IMPAIRED [None]
  - TINNITUS [None]
